FAERS Safety Report 6716781-8 (Version None)
Quarter: 2010Q2

REPORT INFORMATION
  Report Type: 
  Country: None (occurrence: None)
  Receive Date: 20100510
  Receipt Date: 20100503
  Transmission Date: 20101027
  Serious: Yes (Disabling, Other)
  Sender: FDA-Public Use
  Company Number: US-TEVA-233520USA

PATIENT
  Sex: Female

DRUGS (9)
  1. AYGESTIN TABLET 5MG, NORETHINDRONE ACETATE [Suspect]
  2. ESTRACE [Suspect]
  3. ESTRADIOL [Suspect]
  4. ESTRADIOL [Suspect]
  5. ESTRATEST H.S. [Suspect]
  6. NORETHINDRONE ACETATE [Suspect]
  7. ANOVLAR [Suspect]
  8. MEDROXYPROGESTERONE ACETATE [Suspect]
  9. ESTRADIOL [Suspect]

REACTIONS (1)
  - BREAST CANCER [None]
